FAERS Safety Report 4983105-6 (Version None)
Quarter: 2006Q2

REPORT INFORMATION
  Report Type: 
  Country: None (occurrence: None)
  Receive Date: 20060426
  Receipt Date: 20060414
  Transmission Date: 20061013
  Serious: Yes (Other)
  Sender: FDA-Public Use
  Company Number: US-JNJFOC-20040302273

PATIENT
  Age: 27 Year
  Sex: Male

DRUGS (3)
  1. DURAGESIC-100 [Suspect]
     Route: 062
     Dates: start: 20040305
  2. OXYCONTIN [Concomitant]
  3. METHADONE [Concomitant]

REACTIONS (17)
  - AFFECT LABILITY [None]
  - ANGER [None]
  - ANXIETY [None]
  - CONSTIPATION [None]
  - CONVULSION [None]
  - CRYING [None]
  - DEPRESSION [None]
  - DIARRHOEA [None]
  - EPISTAXIS [None]
  - FALL [None]
  - FEELING ABNORMAL [None]
  - GRAND MAL CONVULSION [None]
  - HALLUCINATION [None]
  - INSOMNIA [None]
  - LOSS OF CONSCIOUSNESS [None]
  - SMOKER [None]
  - SUICIDE ATTEMPT [None]
